FAERS Safety Report 7037885-9 (Version None)
Quarter: 2010Q4

REPORT INFORMATION
  Report Type: 
  Country: None (occurrence: None)
  Receive Date: 20101011
  Receipt Date: 20100908
  Transmission Date: 20110411
  Serious: No
  Sender: FDA-Public Use
  Company Number: US-BAYER-201027166NA

PATIENT
  Age: 49 Year
  Sex: Male

DRUGS (1)
  1. ULTRAVIST 300 [Suspect]
     Indication: PRODUCT USED FOR UNKNOWN INDICATION
     Dosage: RIGHT ANTECUBITAL FOREAEM USING POWER INJECTOR
     Route: 042
     Dates: start: 20100615, end: 20100615

REACTIONS (1)
  - URTICARIA [None]
